FAERS Safety Report 8791700 (Version 1)
Quarter: 2012Q4

REPORT INFORMATION
  Report Type: 
  Country: US (occurrence: US)
  Receive Date: 20120918
  Receipt Date: 20120918
  Transmission Date: 20130627
  Serious: Yes (Hospitalization)
  Sender: FDA-Public Use
  Company Number: US-B.I. PHARMACEUTICALS,INC./RIDGEFIELD-2012-BP-22492BP

PATIENT
  Age: 76 Year
  Sex: Female

DRUGS (4)
  1. PRADAXA [Suspect]
     Indication: ATRIAL FIBRILLATION
     Dosage: 300 mg
     Route: 048
     Dates: start: 201202, end: 20120907
  2. ANTIHISTAMINES [Concomitant]
     Dates: start: 2012, end: 2012
  3. TOPICAL PRURITIS MEDIACTIONS [Concomitant]
     Dates: start: 2012, end: 2012
  4. BETA BLOCKER [Concomitant]

REACTIONS (3)
  - Gastrointestinal haemorrhage [Unknown]
  - Pruritus [Unknown]
  - Dry skin [Unknown]
